FAERS Safety Report 6774599-4 (Version None)
Quarter: 2010Q2

REPORT INFORMATION
  Report Type: 
  Country: None (occurrence: None)
  Receive Date: 20100520
  Receipt Date: 20090521
  Transmission Date: 20101027
  Serious: Yes (Other)
  Sender: FDA-Public Use
  Company Number: 2008055283

PATIENT
  Age: 60 Year
  Sex: Female
  Weight: 112 kg

DRUGS (5)
  1. PROVERA [Suspect]
     Indication: HORMONE REPLACEMENT THERAPY
     Dosage: 10 MG/2.5 MG, ORAL
     Route: 048
     Dates: start: 19920701, end: 20001101
  2. MEDROXYPROGESTERONE ACETATE [Suspect]
     Dosage: ORAL
     Route: 048
     Dates: start: 19920701, end: 20001101
  3. PREMARIN [Suspect]
     Indication: HORMONE REPLACEMENT THERAPY
     Dates: start: 19920701, end: 20001101
  4. INSULIN NEUTRAL (INSULIN) [Concomitant]
  5. PROZAC [Concomitant]

REACTIONS (1)
  - BREAST CANCER [None]
